FAERS Safety Report 14239086 (Version 1)
Quarter: 2017Q4

REPORT INFORMATION
  Report Type: Spontaneous
  Country: US (occurrence: US)
  Receive Date: 20171127
  Receipt Date: 20171127
  Transmission Date: 20180321
  Serious: Yes (Other)
  Sender: FDA-Public Use
  Company Number: None

PATIENT
  Age: 75 Year
  Sex: Male
  Weight: 54 kg

DRUGS (5)
  1. OLODATEROL [Suspect]
     Active Substance: OLODATEROL
     Indication: CHRONIC OBSTRUCTIVE PULMONARY DISEASE
     Dosage: ?          QUANTITY:2 SPRAY(S);?
     Route: 055
  2. METOPROLOL. [Concomitant]
     Active Substance: METOPROLOL
  3. RANITIDINE. [Concomitant]
     Active Substance: RANITIDINE
  4. VITAMIN D [Concomitant]
     Active Substance: CHOLECALCIFEROL
  5. SIMVASTATIN. [Concomitant]
     Active Substance: SIMVASTATIN

REACTIONS (4)
  - Rhinorrhoea [None]
  - Arthralgia [None]
  - Insomnia [None]
  - Back pain [None]

NARRATIVE: CASE EVENT DATE: 20171027
